FAERS Safety Report 5752581-3 (Version None)
Quarter: 2008Q2

REPORT INFORMATION
  Report Type: 
  Country: None (occurrence: None)
  Receive Date: 20080529
  Receipt Date: 20080526
  Transmission Date: 20081010
  Serious: Yes (Other)
  Sender: FDA-Public Use
  Company Number: PHHY2008CN08529

PATIENT
  Sex: Male

DRUGS (1)
  1. MIACALCIN [Suspect]
     Dosage: 50 IU, QD
     Route: 030
     Dates: start: 20080524

REACTIONS (3)
  - BLOOD PRESSURE DECREASED [None]
  - CONFUSIONAL STATE [None]
  - PALLOR [None]
